FAERS Safety Report 21625275 (Version 2)
Quarter: 2022Q4

REPORT INFORMATION
  Report Type: Spontaneous
  Country: JP (occurrence: JP)
  Receive Date: 20221122
  Receipt Date: 20221227
  Transmission Date: 20230113
  Serious: Yes (Hospitalization)
  Sender: FDA-Public Use
  Company Number: JP-002147023-NVSJ2022JP101546

PATIENT
  Age: 28 Year
  Sex: Male

DRUGS (1)
  1. TASIGNA [Suspect]
     Active Substance: NILOTINIB
     Indication: Chronic myeloid leukaemia
     Dosage: 600 MG
     Route: 048
     Dates: start: 202211, end: 202211

REACTIONS (3)
  - Stevens-Johnson syndrome [Recovered/Resolved]
  - Erythema multiforme [Recovered/Resolved]
  - Coronavirus infection [Unknown]

NARRATIVE: CASE EVENT DATE: 20221101
